FAERS Safety Report 16423673 (Version 1)
Quarter: 2019Q2

REPORT INFORMATION
  Report Type: Spontaneous
  Country: FR (occurrence: FR)
  Receive Date: 20190613
  Receipt Date: 20190613
  Transmission Date: 20190711
  Serious: Yes (Life-Threatening)
  Sender: FDA-Public Use
  Company Number: FR-TEVA-2019-FR-1060980

PATIENT
  Age: 52 Year
  Sex: Female
  Weight: 79 kg

DRUGS (2)
  1. PAROXETINE. [Suspect]
     Active Substance: PAROXETINE
     Indication: INTENTIONAL OVERDOSE
     Dosage: NP
     Route: 048
     Dates: start: 20190515, end: 20190515
  2. SERESTA [Suspect]
     Active Substance: OXAZEPAM
     Indication: INTENTIONAL OVERDOSE
     Dosage: NP
     Route: 048
     Dates: start: 20190515, end: 20190515

REACTIONS (4)
  - Poisoning deliberate [Recovered/Resolved]
  - Benzodiazepine drug level increased [Recovering/Resolving]
  - Coma [Recovered/Resolved]
  - Antidepressant drug level above therapeutic [Recovered/Resolved]

NARRATIVE: CASE EVENT DATE: 20190515
